FAERS Safety Report 18453909 (Version 1)
Quarter: 2020Q4

REPORT INFORMATION
  Report Type: Spontaneous
  Country: US (occurrence: US)
  Receive Date: 20201102
  Receipt Date: 20201102
  Transmission Date: 20210114
  Serious: No
  Sender: FDA-Public Use
  Company Number: US-MILLICENT HOLDINGS LTD.-MILL20201013

PATIENT
  Age: 64 Year
  Sex: Female

DRUGS (1)
  1. INTRAROSA [Suspect]
     Active Substance: PRASTERONE
     Indication: VULVOVAGINAL DRYNESS
     Dosage: ONCE NIGHTLY FOR 2 WEEKS THEN ONCE NIGHTLY THREE TIMES A WEEK
     Route: 067
     Dates: start: 20201012, end: 20201022

REACTIONS (5)
  - Off label use [Unknown]
  - Skin tightness [Recovering/Resolving]
  - Pruritus [Recovering/Resolving]
  - Erythema [Recovering/Resolving]
  - Flushing [Recovering/Resolving]

NARRATIVE: CASE EVENT DATE: 20201019
